FAERS Safety Report 21106073 (Version 1)
Quarter: 2022Q3

REPORT INFORMATION
  Report Type: Report from Study
  Country: NG (occurrence: NG)
  Receive Date: 20220720
  Receipt Date: 20220720
  Transmission Date: 20221027
  Serious: Yes (Hospitalization)
  Sender: FDA-Public Use
  Company Number: NG-NOVARTISPH-NVSC2022NG164054

PATIENT
  Age: 30 Year
  Sex: Male

DRUGS (1)
  1. ARTEMETHER\LUMEFANTRINE [Suspect]
     Active Substance: ARTEMETHER\LUMEFANTRINE
     Indication: Product used for unknown indication
     Dosage: UNK (DOSE: 3DAYS) (START WITH 4,THEN 4AFTER 8HOURS AND 4MORNING, 4EVENING)
     Route: 048

REACTIONS (1)
  - Illness [Recovered/Resolved]
